FAERS Safety Report 18045704 (Version 2)
Quarter: 2020Q3

REPORT INFORMATION
  Report Type: Report from Study
  Country: CA (occurrence: CA)
  Receive Date: 20200720
  Receipt Date: 20200727
  Transmission Date: 20201103
  Serious: Yes (Other)
  Sender: FDA-Public Use
  Company Number: CA-HLS-202000849

PATIENT
  Sex: Male

DRUGS (1)
  1. CLOZARIL [Suspect]
     Active Substance: CLOZAPINE
     Dosage: HE WAS ADMITTED WITH 600MG QHS AND HIS DOES WAS LOWERED DURING HIS STAY. HIS LAST DOSE WAS 150MG QHS
     Route: 048
     Dates: start: 20170619, end: 20200610

REACTIONS (1)
  - Neuroleptic malignant syndrome [Unknown]
